FAERS Safety Report 20793317 (Version 8)
Quarter: 2022Q3

REPORT INFORMATION
  Report Type: Report from Study
  Country: GB (occurrence: GB)
  Receive Date: 20220506
  Receipt Date: 20220817
  Transmission Date: 20221027
  Serious: Yes (Death, Hospitalization, Other)
  Sender: FDA-Public Use
  Company Number: GB-CELLTRION INC.-2021GB019259

PATIENT

DRUGS (354)
  1. TRASTUZUMAB [Suspect]
     Active Substance: TRASTUZUMAB
     Indication: HER2 positive breast cancer
     Dosage: 567 MG, QD (LOADING DOSE) (DOSE FORM: 293)
     Route: 041
     Dates: start: 20160609, end: 20160609
  2. TRASTUZUMAB [Suspect]
     Active Substance: TRASTUZUMAB
     Indication: Breast cancer metastatic
     Dosage: 451.5 MG, EVERY 3 WEEKS (DOSE FORM: 293)
     Route: 042
     Dates: start: 20161021, end: 20161111
  3. TRASTUZUMAB [Suspect]
     Active Substance: TRASTUZUMAB
     Dosage: 420 MG, EVERY 3 WEEKS (DOSE FORM: 293)
     Route: 042
     Dates: start: 20160701, end: 20200727
  4. TRASTUZUMAB [Suspect]
     Active Substance: TRASTUZUMAB
     Dosage: 451.5 MG, EVERY 3 WEEKS
     Route: 042
     Dates: start: 20170428, end: 20170519
  5. TRASTUZUMAB [Suspect]
     Active Substance: TRASTUZUMAB
     Dosage: 472.5 MG, EVERY 3 WEEKS(MOST RECENT DOSE ON 28/DEC/2017)
     Route: 042
     Dates: start: 20170612, end: 20171228
  6. TRASTUZUMAB [Suspect]
     Active Substance: TRASTUZUMAB
     Dosage: 420 MG, EVERY 3 WEEKS (DOSE FORM: 293)
     Route: 042
     Dates: start: 20160907, end: 20160926
  7. TRASTUZUMAB [Suspect]
     Active Substance: TRASTUZUMAB
     Dosage: 451.5 MILLIGRAM, 3 TIMES/WK (PHARMACEUTICAL DOSE FORM: 200) (CUMULATIVE DOSE: 21680.062)
     Route: 042
     Dates: start: 20161111, end: 20170519
  8. TRASTUZUMAB [Suspect]
     Active Substance: TRASTUZUMAB
     Dosage: 451.5 MG, EVERY 3 WEEKS
     Route: 042
     Dates: start: 20161202, end: 20170203
  9. TRASTUZUMAB [Suspect]
     Active Substance: TRASTUZUMAB
     Dosage: 472.5 MG, EVERY 3 WEEKS (DOSE FORM: 293)
     Route: 042
     Dates: start: 20170519, end: 20171228
  10. TRASTUZUMAB [Suspect]
     Active Substance: TRASTUZUMAB
     Dosage: 420 MG, EVERY 3 WEEKS (DOSE FORM: 293)
     Route: 042
     Dates: start: 20170224, end: 20170407
  11. TRASTUZUMAB [Suspect]
     Active Substance: TRASTUZUMAB
     Dosage: 280 MILLIGRAM, Q3WK (PHARMACEUTICAL DOSE FORM: 200) (CUMULATIVE DOSE: 66965.0 MG)
     Route: 042
     Dates: start: 20180131, end: 20180131
  12. TRASTUZUMAB [Suspect]
     Active Substance: TRASTUZUMAB
     Dosage: 430.5 MILLIGRAM, 3 TIMES/WK (DOSAGE FORM: 200) (CUMULATIVE DOSE: 39997.68 MG)
     Route: 042
     Dates: start: 20170224
  13. TRASTUZUMAB [Suspect]
     Active Substance: TRASTUZUMAB
     Dosage: 441 MG (DOSAGE FORM: 200)
     Route: 042
     Dates: start: 20160202, end: 20170203
  14. TRASTUZUMAB [Suspect]
     Active Substance: TRASTUZUMAB
     Dosage: 420 MILLIGRAM, 3 TIMES/WK (DOSAGE FORM: 200) (CUMULATIVE DOSE: 39067.5 MG)
     Route: 042
     Dates: start: 20170224, end: 20170407
  15. TRASTUZUMAB [Suspect]
     Active Substance: TRASTUZUMAB
     Dosage: 280 MILLIGRAM, Q3WK (PHARMACEUTICAL DOSE FORM: 200) (CUMULATIVE DOSE: 66965.0 MG)
     Route: 042
     Dates: start: 20180131, end: 20180131
  16. TRASTUZUMAB [Suspect]
     Active Substance: TRASTUZUMAB
     Dosage: 441 MG, EVERY 3 WEEKS (PHARMACEUTICAL DOSE FORM: 230) (CUMULATIVE DOSE: 987.0 MG)
     Route: 042
     Dates: start: 20160907, end: 20160926
  17. TRASTUZUMAB [Suspect]
     Active Substance: TRASTUZUMAB
     Dosage: 420 MILLIGRAM, 3 TIMES/WK (PHARMACEUTICAL DOSE FORM: 200) (CUMULATIVE DOSE: 3780.0MG)
     Route: 042
     Dates: start: 20160701, end: 20200727
  18. TRASTUZUMAB [Suspect]
     Active Substance: TRASTUZUMAB
     Dosage: 72.5 MILLIGRAM, 3 TIMES/WK (PHARMACEUTICAL DOSE FORM: 200)
     Dates: start: 20170612
  19. TRASTUZUMAB [Suspect]
     Active Substance: TRASTUZUMAB
     Dosage: 451.5 MILLIGRAM, 3 TIMES/WK (PHARMACEUTICAL DOSE FORM: 200) (CUMULATIVE DOSE: 54180.0MG)
     Route: 042
     Dates: start: 20170428, end: 20170519
  20. TRASTUZUMAB [Suspect]
     Active Substance: TRASTUZUMAB
     Dosage: 451.5 MILLIGRAM, 3 TIMES/WK (PHARMACEUTICAL DOSE FORM: 200) (CUMULATIVE DOSE: 25743.562MG)
     Route: 042
     Dates: start: 20161202, end: 20170203
  21. TRASTUZUMAB [Suspect]
     Active Substance: TRASTUZUMAB
     Dosage: 420 MILLIGRAM, 3 TIMES/WK (PHARMACEUTICAL DOSE FORM: 200) (CUMULATIVE DOSE: 8460.0MG)
     Route: 042
     Dates: start: 20160907, end: 20160926
  22. TRASTUZUMAB [Suspect]
     Active Substance: TRASTUZUMAB
     Dosage: 441 MILLIGRAM (PHARMACEUTICAL DOSE FORM: 200)
     Route: 042
     Dates: start: 20160202, end: 20160203
  23. TRASTUZUMAB [Suspect]
     Active Substance: TRASTUZUMAB
     Dosage: 451.5 MILLIGRAM, 3 TIMES/WK (DOSE FORM: 200) (CUMULATIVE DOSE: 17608.5MG)
     Route: 042
     Dates: start: 20161021, end: 20161111
  24. TRASTUZUMAB [Suspect]
     Active Substance: TRASTUZUMAB
     Dosage: 441 MILLIGRAM, 3 DOSE PER 1W (DOSE FORM: 200) (CUMULATIVE DOSE: 8883.0MG)
     Route: 042
     Dates: start: 20160907, end: 20160926
  25. TRASTUZUMAB [Suspect]
     Active Substance: TRASTUZUMAB
     Dosage: 472.5 MILLIGRAM, 3 TIMES/WK (DOSE FORM: 200) (CUMULATIVE DOSE: 65812.5MG)
     Route: 042
     Dates: start: 20170612
  26. TRASTUZUMAB [Suspect]
     Active Substance: TRASTUZUMAB
     Dosage: INFUSION, SOLUTION (DOSE FORM: 293)
     Route: 042
     Dates: start: 20161111, end: 20170519
  27. TRASTUZUMAB [Suspect]
     Active Substance: TRASTUZUMAB
     Dosage: 420 MG EVERY 3 WEEKS (DOSE FORM: 230) (CUMULATIVE DOSE: 420MG)
     Route: 042
     Dates: start: 20160701, end: 20200727
  28. TRASTUZUMAB [Suspect]
     Active Substance: TRASTUZUMAB
     Dosage: 420 MG EVERY 3 WEEKS (DOSE FORM: 230) (CUMULATIVE DOSE: 4340.8335MG)
     Route: 042
     Dates: start: 20170224, end: 20170407
  29. TRASTUZUMAB [Suspect]
     Active Substance: TRASTUZUMAB
     Dosage: 280 MG EVERY 3 WEEKS (DOSE FORM: 230) (CUMULATIVE DOSE: 7440.5557MG)
     Route: 042
     Dates: start: 20180131
  30. TRASTUZUMAB [Suspect]
     Active Substance: TRASTUZUMAB
     Dosage: 451.5 MG EVERY 3 WEEKS (DOSE FORM: 230) (CUMULATIVE DOSE: 1955.5MG)
     Route: 042
     Dates: start: 20161021, end: 20161111
  31. TRASTUZUMAB [Suspect]
     Active Substance: TRASTUZUMAB
     Dosage: 472.5 MG EVERY 3 WEEKS (MOST RECENT DOSE ON 28/DEC/2017) (DOSE FORM: 230) (CUMULATIVE DOSE: 7312.5MG
     Route: 042
     Dates: start: 20170612
  32. TRASTUZUMAB [Suspect]
     Active Substance: TRASTUZUMAB
     Dosage: 472.5 MG EVERY 3 WEEKS (LOADING DOSE) (DOSE FORM: 230) (CUMULATIVE DOSE: 6772.5MG)
     Route: 042
     Dates: start: 20170519, end: 20171228
  33. TRASTUZUMAB [Suspect]
     Active Substance: TRASTUZUMAB
     Dosage: 451.5 MG EVERY 3 WEEKS (DOSE FORM: 230) (CUMULATIVE DOSE: 6020MG)
     Route: 042
     Dates: start: 20170428, end: 20170519
  34. TRASTUZUMAB [Suspect]
     Active Substance: TRASTUZUMAB
     Dosage: 420 MG EVERY 3 WEEKS (DOSE FORM: 230) (CUMULATIVE DOSE: 940MG)
     Route: 042
     Dates: start: 20160907, end: 20160926
  35. TRASTUZUMAB [Suspect]
     Active Substance: TRASTUZUMAB
     Dosage: 567 MG, QD, LOADING DOSE (DOSE FORM: 230) (CUMULATIVE DOSE: 24381MG)
     Route: 041
     Dates: start: 20160609, end: 20160609
  36. TRASTUZUMAB [Suspect]
     Active Substance: TRASTUZUMAB
     Dosage: 451.5MG EVERY 3 WEEKS (DOSE FORM: 230) (CUMULATIVE DOSE: 2408.8958MG)
     Route: 042
     Dates: start: 20161111, end: 20170519
  37. TRASTUZUMAB [Suspect]
     Active Substance: TRASTUZUMAB
     Dosage: 451.5MG EVERY 3 WEEKS (DOSE FORM: 230) (CUMULATIVE DOSE: 2860.3958MG)
     Route: 042
     Dates: start: 20161202, end: 20170203
  38. TRASTUZUMAB [Suspect]
     Active Substance: TRASTUZUMAB
     Dosage: 441MG EVERY 3 WEEKS (DOSE FORM: 230) (CUMULATIVE DOSE: 987MG)
     Route: 042
     Dates: start: 20160907, end: 20160926
  39. TRASTUZUMAB [Suspect]
     Active Substance: TRASTUZUMAB
     Dosage: INFUSION, SOLUTION (DOSE FORM: 293)
     Route: 042
     Dates: start: 20161202, end: 20170203
  40. TRASTUZUMAB [Suspect]
     Active Substance: TRASTUZUMAB
     Dosage: INFUSION, SOLUTION (DOSE FORM: 293)
     Route: 042
     Dates: start: 20170224, end: 20170407
  41. TRASTUZUMAB [Suspect]
     Active Substance: TRASTUZUMAB
     Dosage: INFUSION, SOLUTION (DOSE FORM: 293)
     Route: 042
     Dates: start: 20161111, end: 20170519
  42. TRASTUZUMAB [Suspect]
     Active Substance: TRASTUZUMAB
     Dosage: INFUSION, SOLUTION (DOSE FORM: 293)
     Route: 042
     Dates: start: 20160907, end: 20160926
  43. TRASTUZUMAB [Suspect]
     Active Substance: TRASTUZUMAB
     Dosage: INFUSION, SOLUTION (DOSE FORM: 293)
     Route: 042
     Dates: start: 20161021, end: 20161111
  44. TRASTUZUMAB [Suspect]
     Active Substance: TRASTUZUMAB
     Dosage: INFUSION, SOLUTION (DOSE FORM: 293)
     Route: 042
     Dates: start: 20160701, end: 20200727
  45. TRASTUZUMAB [Suspect]
     Active Substance: TRASTUZUMAB
     Dosage: LOADING DOSE, INFUSION, SOLUTION (DOSE FORM: 293)
     Route: 042
     Dates: start: 20160609, end: 20160609
  46. TRASTUZUMAB [Suspect]
     Active Substance: TRASTUZUMAB
     Dosage: INFUSION, SOLUTION (DOSE FORM: 293)
     Route: 042
     Dates: start: 20170519, end: 20171228
  47. TRASTUZUMAB [Suspect]
     Active Substance: TRASTUZUMAB
     Dosage: 420 MG EVERY 3 WEEKS (DOSE FORM: 230) (CUMULATIVE DOSE: 420MG)
     Route: 042
     Dates: start: 20160701, end: 20200727
  48. TRASTUZUMAB [Suspect]
     Active Substance: TRASTUZUMAB
     Dosage: 420 MG EVERY 3 WEEKS (DOSE FORM: 230) (CUMULATIVE DOSE: 4340.8335MG)
     Route: 042
     Dates: start: 20170224, end: 20170407
  49. TRASTUZUMAB [Suspect]
     Active Substance: TRASTUZUMAB
     Dosage: 280 MG EVERY 3 WEEKS (DOSE FORM: 230) (CUMULATIVE DOSE: 7440.5557MG)
     Route: 042
     Dates: start: 20180131
  50. TRASTUZUMAB [Suspect]
     Active Substance: TRASTUZUMAB
     Dosage: 451.5 MG EVERY 3 WEEKS (DOSE FORM: 230) (CUMULATIVE DOSE: 1955.5MG)
     Route: 042
     Dates: start: 20161021, end: 20161111
  51. ANASTROZOLE [Suspect]
     Active Substance: ANASTROZOLE
     Indication: HER2 positive breast cancer
     Dosage: UNK
     Dates: start: 20180606, end: 20190904
  52. ANASTROZOLE [Suspect]
     Active Substance: ANASTROZOLE
     Indication: Breast cancer metastatic
     Dosage: 1 MG, QD
     Route: 048
     Dates: start: 20180606, end: 20190904
  53. ANASTROZOLE [Suspect]
     Active Substance: ANASTROZOLE
     Dosage: UNK
     Route: 048
  54. ANASTROZOLE [Suspect]
     Active Substance: ANASTROZOLE
     Dosage: 1 MILLIGRAM, QD
     Route: 048
     Dates: start: 20180606
  55. DOCETAXEL [Suspect]
     Active Substance: DOCETAXEL
     Indication: HER2 positive breast cancer
     Dosage: 130 MILLIGRAM, Q3WK
     Route: 042
     Dates: start: 20160701, end: 20160727
  56. DOCETAXEL [Suspect]
     Active Substance: DOCETAXEL
     Indication: Breast cancer metastatic
     Dosage: 130 MILLIGRAM, Q3WK
     Route: 042
     Dates: start: 20160701, end: 20160727
  57. DOCETAXEL [Suspect]
     Active Substance: DOCETAXEL
     Dosage: 130 MILLIGRAM, Q3WK
     Route: 042
     Dates: start: 20160701, end: 20160727
  58. DOCETAXEL [Suspect]
     Active Substance: DOCETAXEL
     Dosage: 108 MILLIGRAM, Q3WK
     Route: 042
     Dates: start: 20161111, end: 20161111
  59. DOCETAXEL [Suspect]
     Active Substance: DOCETAXEL
     Dosage: 108 MILLIGRAM, Q3WK
     Route: 042
     Dates: start: 20161111, end: 20161111
  60. DOCETAXEL [Suspect]
     Active Substance: DOCETAXEL
     Dosage: 108 MILLIGRAM, Q3WK
     Route: 042
     Dates: start: 20161111, end: 20161111
  61. DOCETAXEL [Suspect]
     Active Substance: DOCETAXEL
     Dosage: 110 MILLIGRAM, Q3WK
     Route: 042
     Dates: start: 20160907, end: 20161021
  62. DOCETAXEL [Suspect]
     Active Substance: DOCETAXEL
     Dosage: 110 MILLIGRAM, Q3WK
     Route: 042
     Dates: start: 20160907, end: 20161021
  63. DOCETAXEL [Suspect]
     Active Substance: DOCETAXEL
     Dosage: 110 MILLIGRAM, Q3WK
     Route: 042
     Dates: start: 20160907, end: 20161021
  64. DOCETAXEL [Suspect]
     Active Substance: DOCETAXEL
     Dosage: 130 MG, EVERY 3 WEEKS
     Route: 042
     Dates: start: 20160701
  65. DOCETAXEL [Suspect]
     Active Substance: DOCETAXEL
     Dosage: 108 MG, EVERY 3 WEEKS
     Route: 042
     Dates: start: 20161111, end: 20161111
  66. DOCETAXEL [Suspect]
     Active Substance: DOCETAXEL
     Dosage: 110 MG, EVERY 3 WEEKS
     Route: 042
     Dates: start: 20160907, end: 20161021
  67. DOCETAXEL [Suspect]
     Active Substance: DOCETAXEL
     Dosage: 130 MG, EVERY 3 WEEKS (CUMULATIVE DOSE: 130MG)
     Route: 042
     Dates: start: 20160701, end: 20160727
  68. DOCETAXEL [Suspect]
     Active Substance: DOCETAXEL
     Dosage: EVERY 3 WEEK (CUMULATIVE DOSE:130 MG)
     Route: 042
     Dates: start: 20160907, end: 20161021
  69. DOCETAXEL [Suspect]
     Active Substance: DOCETAXEL
     Dosage: 1, EVERY 3 WEEKS; UNKNOWN
     Route: 042
     Dates: start: 20160907, end: 20161021
  70. DOCETAXEL [Suspect]
     Active Substance: DOCETAXEL
     Dosage: 1NG
     Route: 042
     Dates: start: 20170616
  71. DOCETAXEL [Suspect]
     Active Substance: DOCETAXEL
     Dosage: 130 MG EVERY 3 WEEKS
     Route: 042
     Dates: start: 20160727
  72. DOCETAXEL [Suspect]
     Active Substance: DOCETAXEL
     Dosage: 500 MG, EVERY 12 HOURS
     Route: 042
     Dates: start: 20170617
  73. ADO-TRASTUZUMAB EMTANSINE [Suspect]
     Active Substance: ADO-TRASTUZUMAB EMTANSINE
     Indication: HER2 positive breast cancer
     Dosage: 280 MG, EVERY 3 WEEKS
     Route: 041
     Dates: start: 20180131
  74. ADO-TRASTUZUMAB EMTANSINE [Suspect]
     Active Substance: ADO-TRASTUZUMAB EMTANSINE
     Dosage: 280 MG, EVERY 1 DAY (INFUSION, SOLUTION) (DOSE FORM: 293)
     Route: 042
     Dates: start: 20180131, end: 20180131
  75. ADO-TRASTUZUMAB EMTANSINE [Suspect]
     Active Substance: ADO-TRASTUZUMAB EMTANSINE
     Dosage: 280 MILLIGRAM EVERY 3 WEEKS (DOSE FORM: 230; CUMULATIVE DOSE: 7440.5557MG)
     Route: 042
     Dates: start: 20180131, end: 20180131
  76. ADO-TRASTUZUMAB EMTANSINE [Suspect]
     Active Substance: ADO-TRASTUZUMAB EMTANSINE
     Dosage: 280 MG
     Route: 042
     Dates: start: 20180131, end: 20180131
  77. ADO-TRASTUZUMAB EMTANSINE [Suspect]
     Active Substance: ADO-TRASTUZUMAB EMTANSINE
     Dosage: 280 MG (DOSE FORM:293)
     Route: 042
     Dates: start: 20180131, end: 20180131
  78. ADO-TRASTUZUMAB EMTANSINE [Suspect]
     Active Substance: ADO-TRASTUZUMAB EMTANSINE
     Dosage: 280 MG, Q3W (DOSE FORM: 230)
     Route: 042
     Dates: start: 20180131, end: 20180131
  79. ADO-TRASTUZUMAB EMTANSINE [Suspect]
     Active Substance: ADO-TRASTUZUMAB EMTANSINE
     Dosage: UNK; ; (DOSE FORM: 230)
     Route: 065
  80. PERTUZUMAB [Suspect]
     Active Substance: PERTUZUMAB
     Indication: HER2 positive breast cancer
     Dosage: 420 MG, EVERY 3 WEEKS (DOSE FORM: 120)
     Route: 042
     Dates: start: 20160701, end: 20171228
  81. PERTUZUMAB [Suspect]
     Active Substance: PERTUZUMAB
     Indication: Breast cancer metastatic
     Dosage: 840 MG, QD (DOSE FORM: 120)
     Route: 042
     Dates: start: 20160609, end: 20160609
  82. PERTUZUMAB [Suspect]
     Active Substance: PERTUZUMAB
     Dosage: 840MG, QD (LOADING DOSE, INFUSION, SOLUTION)
     Route: 042
     Dates: start: 20160609
  83. PERTUZUMAB [Suspect]
     Active Substance: PERTUZUMAB
     Dosage: 420 MG, EVERY 3 WEEKS (PHARMACEUTICAL DOSE FORM: 230; CUMULATIVE DOSE TO FIRST REACTION: 420MG)
     Route: 042
     Dates: start: 20160701, end: 20171228
  84. PERTUZUMAB [Suspect]
     Active Substance: PERTUZUMAB
     Dosage: 420 MG, EVERY 3 WEEKS (PHARMACEUTICAL DOSE FORM: 230; CUMULATIVE DOSE TO FIRST REACTION: 420MG)
     Route: 042
     Dates: start: 20160701, end: 20171228
  85. PERTUZUMAB [Suspect]
     Active Substance: PERTUZUMAB
     Dosage: INFUSION, SOLUTION
     Route: 042
     Dates: start: 20160701
  86. PERTUZUMAB [Suspect]
     Active Substance: PERTUZUMAB
     Dosage: 840 MG, QD, LOADING DOSE (DOSE FORM: 230)
     Route: 042
     Dates: start: 20160609, end: 20160609
  87. PERTUZUMAB [Suspect]
     Active Substance: PERTUZUMAB
     Dosage: 840 MG, QD, LOADING DOSE (DOSE FORM: 230)
     Route: 042
     Dates: start: 20160609, end: 20160609
  88. PERTUZUMAB [Suspect]
     Active Substance: PERTUZUMAB
     Dosage: 420MG, EVERY 3 WEEKS (PHARMACEUTICAL DOSE: 120)
     Route: 042
     Dates: start: 20160701, end: 20171228
  89. PERTUZUMAB [Suspect]
     Active Substance: PERTUZUMAB
     Dosage: 420MG, EVERY 3 WEEKS (PHARMACEUTICAL DOSE: 293)
     Route: 042
     Dates: start: 20160701
  90. PERTUZUMAB [Suspect]
     Active Substance: PERTUZUMAB
     Dosage: 840 MG, QD, ( PHARMACEUTICAL DOSE FORM: 120)
     Route: 042
     Dates: start: 20160609, end: 20160609
  91. PERTUZUMAB [Suspect]
     Active Substance: PERTUZUMAB
     Dosage: 420MG, EVERY 3 WEEKS (DOSAGE: INFUSION, SOLUTION)
     Route: 042
     Dates: start: 20160701
  92. PERTUZUMAB [Suspect]
     Active Substance: PERTUZUMAB
     Dosage: 840MG, QD (LOADING DOSE, INFUSION, SOLUTION)
     Route: 042
     Dates: start: 20160609
  93. PERTUZUMAB [Suspect]
     Active Substance: PERTUZUMAB
     Dosage: UNK
  94. PERTUZUMAB [Suspect]
     Active Substance: PERTUZUMAB
     Dosage: 840 MG, EVERY 3 WEEK (LOADING DOSE)
     Route: 042
     Dates: start: 20160609, end: 20160609
  95. PERTUZUMAB [Suspect]
     Active Substance: PERTUZUMAB
     Indication: HER2 positive breast cancer
     Dosage: 840 MG, QD
     Route: 042
     Dates: start: 20160609, end: 20160609
  96. PERTUZUMAB [Suspect]
     Active Substance: PERTUZUMAB
     Dosage: 420 MG EVERY 3 WEEK
     Route: 042
     Dates: start: 20160701, end: 20171228
  97. PERTUZUMAB [Suspect]
     Active Substance: PERTUZUMAB
     Dosage: 840 MG, QD (LOADING DOSE/DOSE FORM: 230)
     Route: 042
     Dates: start: 20160609, end: 20160609
  98. PERTUZUMAB [Suspect]
     Active Substance: PERTUZUMAB
     Dosage: 420 MG EVERY 3 WEEK (DOSE FORM: 230)
     Route: 042
     Dates: start: 20160701, end: 20171228
  99. PERTUZUMAB [Suspect]
     Active Substance: PERTUZUMAB
     Indication: HER2 positive breast cancer
     Dosage: 840 MG (LOADING DOSE) (DOSE FORM: 230)
     Route: 042
     Dates: start: 20160609, end: 20160609
  100. PERTUZUMAB [Suspect]
     Active Substance: PERTUZUMAB
     Dosage: 420 MG, Q3W (INFUSION, SOLUTION) (DOSE FORM: 230)
     Route: 042
     Dates: start: 20160609, end: 20160609
  101. ENHERTU [Suspect]
     Active Substance: FAM-TRASTUZUMAB DERUXTECAN-NXKI
     Indication: HER2 positive breast cancer
     Dosage: 452 MG, ONCE EVERY 3 WK; INJECTION, POWDER, LYOPHILIZED, FOR SOLUTION (DOSE FORM: 120)
     Route: 042
     Dates: start: 20161021, end: 20161111
  102. ENHERTU [Suspect]
     Active Substance: FAM-TRASTUZUMAB DERUXTECAN-NXKI
     Dosage: 452 MG, ONCE EVERY 3 WK
     Route: 042
     Dates: start: 20161111, end: 20170519
  103. ENHERTU [Suspect]
     Active Substance: FAM-TRASTUZUMAB DERUXTECAN-NXKI
     Dosage: 473 MG, ONCE EVERY 3 WK
     Route: 042
     Dates: start: 20170428, end: 20170519
  104. ENHERTU [Suspect]
     Active Substance: FAM-TRASTUZUMAB DERUXTECAN-NXKI
     Dosage: 473 MG, ONCE EVERY 3 WK; INJECTION, POWDER, LYOPHILIZED, FOR SOLUTION (DOSE FORM: 120)
     Route: 042
     Dates: start: 20170519, end: 20171228
  105. ENHERTU [Suspect]
     Active Substance: FAM-TRASTUZUMAB DERUXTECAN-NXKI
     Dosage: 451.5 MG, EVERY 3 WEEKS; INJECTION, POWDER, LYOPHILIZED, FOR SOLUTION (DOSE FORM: 120)
     Route: 042
     Dates: start: 20161111, end: 20170519
  106. ENHERTU [Suspect]
     Active Substance: FAM-TRASTUZUMAB DERUXTECAN-NXKI
     Dosage: 420 MG, ONCE EVERY 3 WK; INJECTION, POWDER, LYOPHILIZED, FOR SOLUTION (DOSE FORM: 120)
     Route: 042
     Dates: start: 20160907, end: 20160926
  107. ENHERTU [Suspect]
     Active Substance: FAM-TRASTUZUMAB DERUXTECAN-NXKI
     Dosage: 420 MG, ONCE EVERY 3 WK
     Route: 042
     Dates: start: 20160701, end: 20160727
  108. ENHERTU [Suspect]
     Active Substance: FAM-TRASTUZUMAB DERUXTECAN-NXKI
     Dosage: 451.5 MG, EVERY 3 WEEKS; INJECTION, POWDER, LYOPHILIZED, FOR SOLUTION (DOSE FORM: 120)
     Route: 042
     Dates: start: 20180131
  109. ENHERTU [Suspect]
     Active Substance: FAM-TRASTUZUMAB DERUXTECAN-NXKI
     Dosage: 420 MG, ONCE EVERY 3 WK; INJECTION, POWDER, LYOPHILIZED, FOR SOLUTION (DOSE FORM: 120)
     Route: 042
     Dates: start: 20161202, end: 20170203
  110. ENHERTU [Suspect]
     Active Substance: FAM-TRASTUZUMAB DERUXTECAN-NXKI
     Dosage: LOADING DOSE; INJECTION, POWDER, LYOPHILIZED, FOR SOLUTION (DOSE FORM: 120)
     Route: 042
     Dates: start: 20170612, end: 20171228
  111. ENHERTU [Suspect]
     Active Substance: FAM-TRASTUZUMAB DERUXTECAN-NXKI
     Dosage: 420 MG, ONCE EVERY 3 WK; INJECTION, POWDER, LYOPHILIZED, FOR SOLUTION (DOSE FORM: 120)
     Route: 042
     Dates: start: 20170224, end: 20170407
  112. ENHERTU [Suspect]
     Active Substance: FAM-TRASTUZUMAB DERUXTECAN-NXKI
     Dosage: 567 MG, QD; INJECTION, POWDER, LYOPHILIZED, FOR SOLUTION (DOSE FORM: 120)
     Route: 042
     Dates: start: 20160609, end: 20160609
  113. ENHERTU [Suspect]
     Active Substance: FAM-TRASTUZUMAB DERUXTECAN-NXKI
     Dosage: 420 MG, ONCE EVERY 3 WK
     Route: 042
  114. ENHERTU [Suspect]
     Active Substance: FAM-TRASTUZUMAB DERUXTECAN-NXKI
     Dosage: 415.5 MG 451.5 MG, EVERY 3 WEEKS
     Route: 042
     Dates: start: 20161111, end: 20170519
  115. ENHERTU [Suspect]
     Active Substance: FAM-TRASTUZUMAB DERUXTECAN-NXKI
     Dosage: 473 MG, ONCE EVERY 3 WK; INJECTION, POWDER, LYOPHILIZED, FOR SOLUTION (DOSE FORM: 120)
     Route: 042
     Dates: start: 20170428, end: 20170519
  116. ENHERTU [Suspect]
     Active Substance: FAM-TRASTUZUMAB DERUXTECAN-NXKI
     Dosage: 452 MG, ONCE EVERY 3 WK; INJECTION, POWDER, LYOPHILIZED, FOR SOLUTION (DOSE FORM: 120)
     Route: 042
     Dates: start: 20161111, end: 20170519
  117. ENHERTU [Suspect]
     Active Substance: FAM-TRASTUZUMAB DERUXTECAN-NXKI
     Dosage: 420 MG, ONCE EVERY 3 WK; INJECTION, POWDER, LYOPHILIZED, FOR SOLUTION (DOSE FORM: 120)
     Route: 042
     Dates: start: 20160701, end: 20160727
  118. ENHERTU [Suspect]
     Active Substance: FAM-TRASTUZUMAB DERUXTECAN-NXKI
     Dosage: LOADING DOSE; INJECTION, POWDER, LYOPHILIZED, FOR SOLUTION (DOSE FORM: 120)
     Route: 042
     Dates: start: 20170612, end: 20171228
  119. ENHERTU [Suspect]
     Active Substance: FAM-TRASTUZUMAB DERUXTECAN-NXKI
     Dosage: 420 MG, ONCE EVERY 3 WK; INJECTION, POWDER, LYOPHILIZED, FOR SOLUTION (DOSE FORM: 120)
     Route: 042
     Dates: start: 20160701, end: 20160727
  120. ENHERTU [Suspect]
     Active Substance: FAM-TRASTUZUMAB DERUXTECAN-NXKI
     Dosage: 420 MG, ONCE EVERY 3 WK; INJECTION, POWDER, LYOPHILIZED, FOR SOLUTION (DOSE FORM: 120)
     Route: 042
     Dates: start: 20161202, end: 20170203
  121. ENHERTU [Suspect]
     Active Substance: FAM-TRASTUZUMAB DERUXTECAN-NXKI
     Dosage: 441 MG, EVERY 3 WEEKS
     Route: 042
     Dates: start: 20160907, end: 20160926
  122. ENHERTU [Suspect]
     Active Substance: FAM-TRASTUZUMAB DERUXTECAN-NXKI
     Dosage: 451.5 MG, EVERY 3 WEEKS
     Route: 042
     Dates: start: 20170428, end: 20170519
  123. ENHERTU [Suspect]
     Active Substance: FAM-TRASTUZUMAB DERUXTECAN-NXKI
     Dosage: 451.5 MG, EVERY 3 WEEKS
     Route: 042
     Dates: start: 20161202, end: 20170203
  124. ENHERTU [Suspect]
     Active Substance: FAM-TRASTUZUMAB DERUXTECAN-NXKI
     Dosage: 472.5 MG, EVERY 3 WEEKS (MOST RECENT DOSE ON 28/DEC/2017)
     Route: 042
     Dates: start: 20170612
  125. ENHERTU [Suspect]
     Active Substance: FAM-TRASTUZUMAB DERUXTECAN-NXKI
     Dosage: 451.5 MG, EVERY 3 WEEKS
     Route: 042
     Dates: start: 20180131
  126. ENHERTU [Suspect]
     Active Substance: FAM-TRASTUZUMAB DERUXTECAN-NXKI
     Dosage: 451.5 MG, EVERY 3 WEEKS
     Route: 042
     Dates: start: 20161021, end: 20161111
  127. ENHERTU [Suspect]
     Active Substance: FAM-TRASTUZUMAB DERUXTECAN-NXKI
     Dosage: 472.5 MG, EVERY 3 WEEKS (LOADING DOSE)
     Route: 042
     Dates: start: 20170519, end: 20171228
  128. TAMOXIFEN [Suspect]
     Active Substance: TAMOXIFEN
     Indication: HER2 positive breast cancer
     Dosage: 20 UNK (PHARMACEUTICAL DOSE FORM: 245)
     Route: 048
     Dates: start: 20170623, end: 20171228
  129. TAMOXIFEN [Suspect]
     Active Substance: TAMOXIFEN
     Indication: Breast cancer metastatic
     Dosage: 20 MILLIGRAM, QD, MOST RECENT DOSE ON 05/JUN/2018
     Route: 065
     Dates: start: 20180213, end: 20180605
  130. TAMOXIFEN [Suspect]
     Active Substance: TAMOXIFEN
     Dosage: 20 MILLIGRAM, QD, MOST RECENT DOSE ON 05/JUN/2018 (PHARMACEUTICAL DOSE FORM: 245)
     Route: 065
     Dates: start: 20180213, end: 20180605
  131. TAMOXIFEN [Suspect]
     Active Substance: TAMOXIFEN
     Dosage: UNK
     Route: 065
     Dates: start: 20170623, end: 20171228
  132. TAMOXIFEN [Suspect]
     Active Substance: TAMOXIFEN
     Dosage: UNK
     Route: 065
     Dates: start: 20170623, end: 20171228
  133. TAMOXIFEN [Suspect]
     Active Substance: TAMOXIFEN
     Dosage: UNK; ;
     Route: 065
     Dates: start: 20180213, end: 20180605
  134. TAMOXIFEN [Suspect]
     Active Substance: TAMOXIFEN
     Dosage: MOST RECENT DOSE ON 05/JUN/2018
     Route: 048
     Dates: start: 20180213, end: 20180605
  135. TAMOXIFEN [Suspect]
     Active Substance: TAMOXIFEN
     Dosage: MOST RECENT DOSE ON 05/JUN/2018
     Route: 048
     Dates: start: 20180213, end: 20180605
  136. TAMOXIFEN [Suspect]
     Active Substance: TAMOXIFEN
     Dosage: UNK (DOSE FORM: 245)
     Route: 048
     Dates: start: 20170623, end: 20171228
  137. TAMOXIFEN [Suspect]
     Active Substance: TAMOXIFEN
     Dosage: UNK
     Route: 048
     Dates: start: 20170623, end: 20171228
  138. TAMOXIFEN [Suspect]
     Active Substance: TAMOXIFEN
     Dosage: UNK
     Route: 048
     Dates: start: 20170623, end: 20171228
  139. TAMOXIFEN [Suspect]
     Active Substance: TAMOXIFEN
     Dosage: UNK, QD
     Route: 042
     Dates: start: 20170623, end: 20171228
  140. TAMOXIFEN [Suspect]
     Active Substance: TAMOXIFEN
     Dosage: UNK, QD (MOST RECENT DOSE ON 05/JUN/2018)
     Route: 042
     Dates: start: 20180213, end: 20180605
  141. TAMOXIFEN CITRATE [Suspect]
     Active Substance: TAMOXIFEN CITRATE
     Indication: HER2 positive breast cancer
     Dosage: UNK
     Route: 065
     Dates: start: 20170623, end: 20171228
  142. TAMOXIFEN CITRATE [Suspect]
     Active Substance: TAMOXIFEN CITRATE
     Dosage: UNK
     Route: 065
     Dates: start: 20180213, end: 20180605
  143. TAMOXIFEN CITRATE [Suspect]
     Active Substance: TAMOXIFEN CITRATE
     Dosage: UNK; ; (DOSE FORM: 245)
     Route: 048
     Dates: start: 20170623, end: 20171228
  144. TAMOXIFEN CITRATE [Suspect]
     Active Substance: TAMOXIFEN CITRATE
     Dosage: 20 MG, QD (MOST RECENT DOSE ON 05/JUN/2018) (DOSE FORM: 245)
     Route: 048
     Dates: start: 20180213, end: 20180605
  145. CHLORPHENIRAMINE MALEATE [Concomitant]
     Active Substance: CHLORPHENIRAMINE MALEATE
     Dosage: 10 MG, QD
     Route: 042
     Dates: start: 20160907, end: 20160907
  146. CHLORPHENIRAMINE MALEATE [Concomitant]
     Active Substance: CHLORPHENIRAMINE MALEATE
     Dosage: 10 MG;
     Route: 042
     Dates: start: 20160928, end: 20170724
  147. CHLORPHENIRAMINE MALEATE [Concomitant]
     Active Substance: CHLORPHENIRAMINE MALEATE
     Indication: Product used for unknown indication
     Dosage: 10 MILLIGRAM
     Route: 042
     Dates: start: 20160928, end: 20170724
  148. CHLORPHENIRAMINE MALEATE [Concomitant]
     Active Substance: CHLORPHENIRAMINE MALEATE
     Dosage: 10 MG
     Route: 042
     Dates: start: 20160907, end: 20160907
  149. COTRIMOXAZOLE [Concomitant]
     Active Substance: SULFAMETHOXAZOLE\TRIMETHOPRIM
     Indication: Product used for unknown indication
     Dosage: 483 MG, EVERY 1 DAY
     Route: 048
     Dates: start: 20180131, end: 20180131
  150. COTRIMOXAZOLE [Concomitant]
     Active Substance: SULFAMETHOXAZOLE\TRIMETHOPRIM
     Dosage: 483 MG, EVERY 1 DAY (PHARMACEUTICAL DOSE FORM: 245) (CUMULATIVE DOSE: 269534.12 MG)
     Route: 065
     Dates: start: 20180131, end: 20180131
  151. COTRIMOXAZOLE [Concomitant]
     Active Substance: SULFAMETHOXAZOLE\TRIMETHOPRIM
     Dosage: 483 MG
     Route: 048
     Dates: start: 20180131, end: 20180131
  152. COTRIMOXAZOLE [Concomitant]
     Active Substance: SULFAMETHOXAZOLE\TRIMETHOPRIM
     Dosage: 483 MG, QD (DOSE FORM: 245)
     Route: 048
     Dates: start: 20180131, end: 20180131
  153. SULFAMETHOXAZOLE\TRIMETHOPRIM [Concomitant]
     Active Substance: SULFAMETHOXAZOLE\TRIMETHOPRIM
     Indication: Product used for unknown indication
     Dosage: 2112 MG
     Route: 042
     Dates: start: 20160811, end: 20160816
  154. ALBUTEROL [Concomitant]
     Active Substance: ALBUTEROL
     Indication: Product used for unknown indication
     Dosage: 2.5 MG
     Route: 055
     Dates: start: 20170616, end: 20170618
  155. ALBUTEROL [Concomitant]
     Active Substance: ALBUTEROL
     Dosage: 2.5 MG
     Route: 055
     Dates: start: 20160822, end: 20160908
  156. ALBUTEROL [Concomitant]
     Active Substance: ALBUTEROL
     Dosage: 2.5 MG
     Route: 065
     Dates: start: 20160822, end: 20160908
  157. ALBUTEROL [Concomitant]
     Active Substance: ALBUTEROL
     Dosage: 3 MG
     Route: 065
     Dates: start: 20160822, end: 20160908
  158. ALBUTEROL [Concomitant]
     Active Substance: ALBUTEROL
     Dosage: 3 MG
     Route: 055
     Dates: start: 20170616, end: 20170618
  159. ALBUTEROL [Concomitant]
     Active Substance: ALBUTEROL
     Dosage: UNK
     Route: 055
     Dates: start: 20160822, end: 20160908
  160. LEVOMEPROMAZINE [Concomitant]
     Active Substance: LEVOMEPROMAZINE
     Indication: Product used for unknown indication
     Dosage: 6.25 MG
     Route: 058
     Dates: start: 20170617, end: 20170617
  161. LEVOMEPROMAZINE [Concomitant]
     Active Substance: LEVOMEPROMAZINE
     Dosage: UNK
     Route: 065
     Dates: start: 20170908, end: 20170925
  162. LEVOMEPROMAZINE [Concomitant]
     Active Substance: LEVOMEPROMAZINE
     Dosage: UNK
     Route: 065
     Dates: start: 20170908, end: 20170925
  163. LEVOMEPROMAZINE [Concomitant]
     Active Substance: LEVOMEPROMAZINE
     Dosage: 6 MG
     Route: 058
     Dates: start: 20170617, end: 20170617
  164. LEVOMEPROMAZINE [Concomitant]
     Active Substance: LEVOMEPROMAZINE
     Dosage: 6 MG, QD
     Route: 058
  165. CALCIUM CARBONATE\CHOLECALCIFEROL [Concomitant]
     Active Substance: CALCIUM CARBONATE\CHOLECALCIFEROL
     Indication: Product used for unknown indication
     Dosage: 0.5 UNK, QD
     Route: 048
     Dates: start: 20170621
  166. CALCIUM CARBONATE\CHOLECALCIFEROL [Concomitant]
     Active Substance: CALCIUM CARBONATE\CHOLECALCIFEROL
     Dosage: UNK, PER 0.5 DAY (DOSE FORM: 245)
     Route: 048
     Dates: start: 20170621
  167. CALCIUM CARBONATE\CHOLECALCIFEROL [Concomitant]
     Active Substance: CALCIUM CARBONATE\CHOLECALCIFEROL
     Dosage: 0.5 UNK, QD
     Route: 048
     Dates: start: 20170621
  168. CALCIUM CARBONATE\CHOLECALCIFEROL [Concomitant]
     Active Substance: CALCIUM CARBONATE\CHOLECALCIFEROL
     Dosage: 1, PER 0.5 DAY (DOSE FORM: UNKNOWN)
     Route: 048
     Dates: start: 20170621
  169. CALCIUM CARBONATE\CHOLECALCIFEROL [Concomitant]
     Active Substance: CALCIUM CARBONATE\CHOLECALCIFEROL
     Dosage: 2, PER 0.5 DAY (DOSE FORM: 230)
     Route: 048
     Dates: start: 20170621
  170. CALCIUM CARBONATE\CHOLECALCIFEROL [Concomitant]
     Active Substance: CALCIUM CARBONATE\CHOLECALCIFEROL
     Dosage: 0.5 UNK, QD (2, PER 0.5 DAY (DOSE FORM: 230); DOSE FORM: 245
     Route: 048
     Dates: start: 20170621
  171. CALCIUM CARBONATE\CHOLECALCIFEROL [Concomitant]
     Active Substance: CALCIUM CARBONATE\CHOLECALCIFEROL
     Dosage: UNK, QD (0.5 UNK, QD);
     Route: 048
     Dates: start: 20170621
  172. CALCIUM CARBONATE\CHOLECALCIFEROL [Concomitant]
     Active Substance: CALCIUM CARBONATE\CHOLECALCIFEROL
     Dosage: UNK, QD; ;
     Route: 048
     Dates: start: 20170621
  173. SODIUM CHLORIDE [Concomitant]
     Active Substance: SODIUM CHLORIDE
     Dosage: 5 ML, EVERY 4 WEEKS
     Route: 055
     Dates: start: 20170616, end: 20170623
  174. SODIUM CHLORIDE [Concomitant]
     Active Substance: SODIUM CHLORIDE
     Dosage: 5 MILLILITER, Q4WK (CUMULATIVE DOSE: 58.75 ML)
     Route: 055
     Dates: start: 20170616, end: 20170623
  175. LEVETIRACETAM [Concomitant]
     Active Substance: LEVETIRACETAM
     Indication: Product used for unknown indication
     Dosage: 1 G, QD
     Route: 042
     Dates: start: 20170616, end: 20170616
  176. LEVETIRACETAM [Concomitant]
     Active Substance: LEVETIRACETAM
     Dosage: 500 MG PER 0.5 DAY
     Route: 058
     Dates: start: 20170617
  177. LEVETIRACETAM [Concomitant]
     Active Substance: LEVETIRACETAM
     Dosage: 1 G, QD (EVERY 1 DAY)
     Route: 048
     Dates: start: 20170617
  178. LEVETIRACETAM [Concomitant]
     Active Substance: LEVETIRACETAM
     Dosage: 1000 MG, QD
     Route: 058
     Dates: start: 20170617
  179. LEVETIRACETAM [Concomitant]
     Active Substance: LEVETIRACETAM
     Dosage: 1 G, EVERY 1 DAY (CUMULATIVE DOSE: 330.0 G)
     Route: 048
     Dates: start: 20170617
  180. LEVETIRACETAM [Concomitant]
     Active Substance: LEVETIRACETAM
     Dosage: 1000 MG (CUMULATIVE DOSE: 330000.0 MG)
     Route: 058
     Dates: start: 20170617
  181. LEVETIRACETAM [Concomitant]
     Active Substance: LEVETIRACETAM
     Dosage: UNK; ;
     Dates: start: 20161009, end: 20161017
  182. LEVETIRACETAM [Concomitant]
     Active Substance: LEVETIRACETAM
     Dosage: 500 MG, BID
     Route: 048
     Dates: start: 20170617
  183. LEVETIRACETAM [Concomitant]
     Active Substance: LEVETIRACETAM
     Dosage: UNK; ;
     Route: 065
     Dates: start: 20161009, end: 20161017
  184. LEVETIRACETAM [Concomitant]
     Active Substance: LEVETIRACETAM
     Dosage: 500 MG, 2X/DAY
     Route: 058
     Dates: start: 20170617
  185. MORPHINE SULFATE [Concomitant]
     Active Substance: MORPHINE SULFATE
     Indication: Product used for unknown indication
     Dosage: 2.5 MG
     Route: 048
     Dates: start: 20160828
  186. MORPHINE SULFATE [Concomitant]
     Active Substance: MORPHINE SULFATE
     Dosage: UNK
     Route: 048
     Dates: start: 20160828
  187. MORPHINE SULFATE [Concomitant]
     Active Substance: MORPHINE SULFATE
     Dosage: 2.5 MG;
     Route: 048
  188. MORPHINE SULFATE [Concomitant]
     Active Substance: MORPHINE SULFATE
     Dosage: 2.5 MG (DOSE FORM: 245)
     Route: 048
     Dates: start: 20160828
  189. MORPHINE SULFATE [Concomitant]
     Active Substance: MORPHINE SULFATE
     Dosage: [MORPHINE SULFATE]
     Route: 048
     Dates: start: 20160828
  190. MORPHINE SULFATE [Concomitant]
     Active Substance: MORPHINE SULFATE
     Dosage: 15 MG, EVERY 12 HOUR/15 MG, BID
     Route: 048
     Dates: start: 20180213, end: 20180217
  191. MORPHINE SULFATE [Concomitant]
     Active Substance: MORPHINE SULFATE
     Dosage: 15 MG, BID (EVERY 12 HOUR/15 MG, BID) (DOSE FORM: 245)
     Route: 048
     Dates: start: 20180213, end: 20180217
  192. CHLOROFORM\CODEINE PHOSPHATE\DRIMIA MARITIMA BULB [Concomitant]
     Active Substance: CHLOROFORM\CODEINE PHOSPHATE\DRIMIA MARITIMA BULB
     Dosage: 10 ML
     Route: 048
     Dates: start: 20170619, end: 20170619
  193. CHLOROFORM\CODEINE PHOSPHATE\DRIMIA MARITIMA BULB [Concomitant]
     Active Substance: CHLOROFORM\CODEINE PHOSPHATE\DRIMIA MARITIMA BULB
     Dosage: 10 MILLILITER
     Route: 048
     Dates: start: 20170619, end: 20170619
  194. CHLOROFORM\CODEINE PHOSPHATE\DRIMIA MARITIMA BULB [Concomitant]
     Active Substance: CHLOROFORM\CODEINE PHOSPHATE\DRIMIA MARITIMA BULB
     Dosage: 10 ML, QD
     Route: 048
     Dates: start: 20170619, end: 20170619
  195. ZOPICLONE [Concomitant]
     Active Substance: ZOPICLONE
     Indication: Product used for unknown indication
     Dosage: 3.75 MG
     Route: 048
     Dates: start: 20170618, end: 20170619
  196. ZOPICLONE [Concomitant]
     Active Substance: ZOPICLONE
     Dosage: 3.75 MG (DOSE FORM: 245)
     Route: 048
     Dates: start: 20170618, end: 20170619
  197. ZOPICLONE [Concomitant]
     Active Substance: ZOPICLONE
     Dosage: 4 MG
     Route: 048
     Dates: start: 20170618, end: 20170619
  198. ZOPICLONE [Concomitant]
     Active Substance: ZOPICLONE
     Dosage: 4 MG; (DOSE FORM: 245)
     Route: 048
     Dates: start: 20170618, end: 20170619
  199. ENOXAPARIN [Concomitant]
     Active Substance: ENOXAPARIN
     Indication: Product used for unknown indication
     Dosage: 40 MG, QD
     Route: 058
     Dates: start: 20180105, end: 20180117
  200. ENOXAPARIN [Concomitant]
     Active Substance: ENOXAPARIN
     Dosage: 1200 MG, QD
     Route: 058
     Dates: start: 20180212, end: 20180212
  201. ENOXAPARIN [Concomitant]
     Active Substance: ENOXAPARIN
     Dosage: 40 MG, QD
     Route: 058
     Dates: start: 20180214, end: 20180218
  202. ENOXAPARIN [Concomitant]
     Active Substance: ENOXAPARIN
     Dosage: 40 MG, QD
     Route: 058
     Dates: start: 20170616, end: 20170623
  203. ENOXAPARIN [Concomitant]
     Active Substance: ENOXAPARIN
     Dosage: 40 MG, QD
     Route: 058
     Dates: start: 20160817, end: 20160914
  204. ENOXAPARIN [Concomitant]
     Active Substance: ENOXAPARIN
     Dosage: 120 MG, QD
     Route: 058
  205. ENOXAPARIN [Concomitant]
     Active Substance: ENOXAPARIN
     Dosage: 120 MG, QD
     Route: 058
     Dates: start: 20180212, end: 20180212
  206. ENOXAPARIN [Concomitant]
     Active Substance: ENOXAPARIN
     Dosage: UNK UNK, QD
     Route: 058
     Dates: start: 20180214, end: 20180218
  207. ENOXAPARIN [Concomitant]
     Active Substance: ENOXAPARIN
     Dosage: 40 MG, QD (CUMULATIVE DOSE: 22881.666 MG)
     Route: 058
     Dates: start: 20180214, end: 20180218
  208. ENOXAPARIN [Concomitant]
     Active Substance: ENOXAPARIN
     Dosage: 40 MG, QD (CUMULATIVE DOSE: 21281.666 MG)
     Route: 058
     Dates: start: 20180105, end: 20180117
  209. ENOXAPARIN [Concomitant]
     Active Substance: ENOXAPARIN
     Dosage: 40 MG, QD (CUMULATIVE DOSE: 1040.0 MG)
     Route: 058
     Dates: start: 20160817, end: 20160914
  210. ENOXAPARIN [Concomitant]
     Active Substance: ENOXAPARIN
     Dosage: UNK
     Route: 058
     Dates: start: 20180214, end: 20180218
  211. ENOXAPARIN [Concomitant]
     Active Substance: ENOXAPARIN
     Dosage: 40 MILLIGRAM
     Route: 058
     Dates: start: 20160817, end: 20160914
  212. ENOXAPARIN [Concomitant]
     Active Substance: ENOXAPARIN
     Dosage: 1200 MILLIGRAM, QD (CUMULATIVE DOSE: 684050.0 MG)
     Route: 058
     Dates: start: 20180212, end: 20180212
  213. ENOXAPARIN [Concomitant]
     Active Substance: ENOXAPARIN
     Dosage: UNK; ;
  214. ENOXAPARIN [Concomitant]
     Active Substance: ENOXAPARIN
     Dosage: 40 MG
     Route: 058
     Dates: start: 20180105, end: 20180117
  215. ENOXAPARIN [Concomitant]
     Active Substance: ENOXAPARIN
     Dosage: 40 MILLIGRAM, QD (CUMULATIVE DOSE: 13160.0 MG)
     Route: 058
     Dates: start: 20170616, end: 20170623
  216. ENOXAPARIN [Concomitant]
     Active Substance: ENOXAPARIN
     Dosage: 40 MG, QD
     Route: 058
     Dates: start: 20180212, end: 20180212
  217. AMOXICILLIN [Concomitant]
     Active Substance: AMOXICILLIN
     Indication: Product used for unknown indication
     Dosage: UNK, QD
     Route: 048
     Dates: start: 201712, end: 201712
  218. AMOXICILLIN [Concomitant]
     Active Substance: AMOXICILLIN
     Dosage: 1, QD
     Route: 048
     Dates: start: 201712, end: 201712
  219. AMOXICILLIN [Concomitant]
     Active Substance: AMOXICILLIN
     Dosage: UNKNOWN
     Route: 048
     Dates: start: 201712, end: 201712
  220. METOCLOPRAMIDE [Concomitant]
     Active Substance: METOCLOPRAMIDE
     Indication: Product used for unknown indication
     Dosage: 10 MG
     Route: 048
     Dates: start: 20180131
  221. METOCLOPRAMIDE [Concomitant]
     Active Substance: METOCLOPRAMIDE
     Dosage: 10 MG/10 UNK;
     Route: 042
     Dates: start: 20180106, end: 20180106
  222. METOCLOPRAMIDE [Concomitant]
     Active Substance: METOCLOPRAMIDE
     Dosage: 10 MG/10 UNK;
     Route: 048
     Dates: start: 20160610, end: 20161111
  223. HYDROCORTISONE [Concomitant]
     Active Substance: HYDROCORTISONE
     Indication: Product used for unknown indication
     Dosage: 100 MG
     Route: 042
     Dates: start: 20160928
  224. HYDROCORTISONE [Concomitant]
     Active Substance: HYDROCORTISONE
     Dosage: 100 MG, QD
     Route: 042
     Dates: start: 20160907, end: 20160907
  225. HYDROCORTISONE [Concomitant]
     Active Substance: HYDROCORTISONE
     Dosage: 100 MG
     Route: 042
  226. HYDROCORTISONE [Concomitant]
     Active Substance: HYDROCORTISONE
     Dosage: 500 MG PER 0.5 DAY;
     Route: 058
     Dates: start: 20170617
  227. HYDROCORTISONE [Concomitant]
     Active Substance: HYDROCORTISONE
     Dosage: 1 G;
     Route: 042
     Dates: start: 20170616, end: 20170616
  228. FILGRASTIM [Concomitant]
     Active Substance: FILGRASTIM
     Indication: Product used for unknown indication
     Dosage: 300 UG
     Route: 065
     Dates: start: 20160731, end: 20161112
  229. FILGRASTIM [Concomitant]
     Active Substance: FILGRASTIM
     Dosage: 300 MICROGRAM
     Route: 065
     Dates: start: 20160731, end: 20161112
  230. MEROPENEM [Concomitant]
     Active Substance: MEROPENEM
     Indication: Product used for unknown indication
     Dosage: 1 GRAM
     Route: 042
     Dates: start: 20160809, end: 20160817
  231. PIPERACILLIN SODIUM [Concomitant]
     Active Substance: PIPERACILLIN SODIUM
     Indication: Product used for unknown indication
     Dosage: 4.5 MG, TID
     Route: 065
     Dates: start: 20180212, end: 20180214
  232. PIPERACILLIN SODIUM [Concomitant]
     Active Substance: PIPERACILLIN SODIUM
     Dosage: 4.5 MG, TID
     Route: 065
     Dates: start: 20180212, end: 20180214
  233. RANITIDINE [Concomitant]
     Active Substance: RANITIDINE
     Indication: Product used for unknown indication
     Dosage: 50 MG
     Route: 048
     Dates: start: 20170617, end: 20170618
  234. RANITIDINE [Concomitant]
     Active Substance: RANITIDINE
     Dosage: 50 MG (DOSE FORM: 245)
     Route: 048
     Dates: start: 20170617, end: 20170618
  235. ZOPICLONE [Concomitant]
     Active Substance: ZOPICLONE
     Indication: Product used for unknown indication
     Dosage: 3.75 MILLIGRAM (PHARMACEUTICAL DOSE FORM: 245)
     Route: 048
     Dates: start: 20170618, end: 20170619
  236. ZOPICLONE [Concomitant]
     Active Substance: ZOPICLONE
     Dosage: 3.75 MG
     Route: 048
     Dates: start: 20170618, end: 20170619
  237. ZOPICLONE [Concomitant]
     Active Substance: ZOPICLONE
     Dosage: 4 MG
     Route: 048
     Dates: start: 20170618, end: 20170619
  238. CODEINE [Concomitant]
     Active Substance: CODEINE
     Indication: Product used for unknown indication
     Dosage: 10 ML;
     Route: 048
     Dates: start: 20170619, end: 20170619
  239. PIPERACILLIN SODIUM\TAZOBACTAM SODIUM [Concomitant]
     Active Substance: PIPERACILLIN SODIUM\TAZOBACTAM SODIUM
     Indication: Product used for unknown indication
     Dosage: 13.5 G
     Route: 048
     Dates: start: 20180212, end: 20180214
  240. PIPERACILLIN SODIUM\TAZOBACTAM SODIUM [Concomitant]
     Active Substance: PIPERACILLIN SODIUM\TAZOBACTAM SODIUM
     Dosage: 4.5 MG, TID (3/D)
     Route: 048
     Dates: start: 20180212, end: 20180214
  241. CIPROFLOXACIN [Concomitant]
     Active Substance: CIPROFLOXACIN
     Indication: Product used for unknown indication
     Dosage: UNK
     Route: 065
     Dates: start: 20161009, end: 20161009
  242. CIPROFLOXACIN [Concomitant]
     Active Substance: CIPROFLOXACIN
     Dosage: UNK UNK, QD;
     Route: 065
     Dates: start: 20161009, end: 20161009
  243. CIPROFLOXACIN [Concomitant]
     Active Substance: CIPROFLOXACIN
     Dosage: UNK (START 09-OCT-2016); ;
     Dates: start: 20161009
  244. AMOXICILLIN\CLAVULANATE POTASSIUM [Concomitant]
     Active Substance: AMOXICILLIN\CLAVULANATE POTASSIUM
     Indication: Product used for unknown indication
     Dosage: 625 MILLIGRAM, 3/DAY
     Dates: start: 20180215, end: 20180301
  245. AMOXICILLIN\CLAVULANATE POTASSIUM [Concomitant]
     Active Substance: AMOXICILLIN\CLAVULANATE POTASSIUM
     Dosage: 1.2 GRAM, BID
     Route: 048
     Dates: start: 20180214, end: 20180214
  246. AMOXICILLIN\CLAVULANATE POTASSIUM [Concomitant]
     Active Substance: AMOXICILLIN\CLAVULANATE POTASSIUM
     Dosage: 1875 MG, QD [625 MILLIGRAM, TID (625 MILLIGRAM 3/DAY) (START 15-FEB-2018)]
     Dates: start: 20180301
  247. AMOXICILLIN\CLAVULANATE POTASSIUM [Concomitant]
     Active Substance: AMOXICILLIN\CLAVULANATE POTASSIUM
     Dosage: 2.4 MG QD [1.2 GRAM, BID (START 14-FEB-2018)]
     Route: 042
     Dates: start: 20180214
  248. AMOXICILLIN\CLAVULANATE POTASSIUM [Concomitant]
     Active Substance: AMOXICILLIN\CLAVULANATE POTASSIUM
     Dosage: 1875 MILLIGRAM, QD (START 15-FEB-2018)
     Dates: start: 20180301
  249. AMOXICILLIN\CLAVULANATE POTASSIUM [Concomitant]
     Active Substance: AMOXICILLIN\CLAVULANATE POTASSIUM
     Dosage: 1875 MILLIGRAM, QD (START 14-FEB-2018)
     Route: 065
     Dates: start: 20180214, end: 20180214
  250. AMOXICILLIN\CLAVULANATE POTASSIUM [Concomitant]
     Active Substance: AMOXICILLIN\CLAVULANATE POTASSIUM
     Dosage: 1.2 GRAM, BID
     Route: 042
     Dates: start: 20180214, end: 20180214
  251. AMOXICILLIN\CLAVULANATE POTASSIUM [Concomitant]
     Active Substance: AMOXICILLIN\CLAVULANATE POTASSIUM
     Dosage: 625 MILLIGRAM, TID (625 MILLIGRAM 3/DAY) (START 15-FEB-2018)
     Route: 065
     Dates: start: 20180215, end: 20180301
  252. AMOXICILLIN\CLAVULANATE POTASSIUM [Concomitant]
     Active Substance: AMOXICILLIN\CLAVULANATE POTASSIUM
     Dosage: 1.2 GRAM, BID (START 14-FEB-2018)
     Route: 042
     Dates: start: 20180214, end: 20180214
  253. AMOXICILLIN\CLAVULANATE POTASSIUM [Concomitant]
     Active Substance: AMOXICILLIN\CLAVULANATE POTASSIUM
     Dosage: 1875 MILLIGRAM, QD (START 15-FEB-2018)
     Dates: start: 20180215, end: 20180301
  254. AMOXICILLIN\CLAVULANATE POTASSIUM [Concomitant]
     Active Substance: AMOXICILLIN\CLAVULANATE POTASSIUM
     Dosage: 2.4 GRAM (START 14-FEB-2018)
     Route: 042
     Dates: start: 20180214, end: 20180214
  255. AMOXICILLIN\CLAVULANATE POTASSIUM [Concomitant]
     Active Substance: AMOXICILLIN\CLAVULANATE POTASSIUM
     Dosage: 2.4 G, QD
     Route: 042
     Dates: start: 20180214, end: 20180301
  256. AMOXICILLIN\CLAVULANATE POTASSIUM [Concomitant]
     Active Substance: AMOXICILLIN\CLAVULANATE POTASSIUM
     Dosage: 625 MG, TID (625 MILLIGRAM, 3/DAY)
     Dates: start: 20180215, end: 20180301
  257. AMOXICILLIN\CLAVULANATE POTASSIUM [Concomitant]
     Active Substance: AMOXICILLIN\CLAVULANATE POTASSIUM
     Dosage: 1875 MILLIGRAM, QD (START 14-FEB-2018)
     Dates: start: 20180214, end: 20180214
  258. AMOXICILLIN\CLAVULANATE POTASSIUM [Concomitant]
     Active Substance: AMOXICILLIN\CLAVULANATE POTASSIUM
     Dosage: 2.4 G, BID (START 14-FEB-2018)
     Route: 042
     Dates: start: 20180214, end: 20180214
  259. AMOXICILLIN\CLAVULANATE POTASSIUM [Concomitant]
     Active Substance: AMOXICILLIN\CLAVULANATE POTASSIUM
     Dosage: 4.8 G (1.2 GRAM, BID (START 14-FEB-2018);
     Route: 042
  260. CLARITHROMYCIN [Concomitant]
     Active Substance: CLARITHROMYCIN
     Indication: Product used for unknown indication
     Dosage: 500 MILLIGRAM
     Route: 048
     Dates: start: 20180214, end: 20180301
  261. CLARITHROMYCIN [Concomitant]
     Active Substance: CLARITHROMYCIN
     Dosage: 500 MILLIGRAM (START 14-FEB-2018)
     Route: 048
     Dates: start: 20180301
  262. ENOXAPARIN SODIUM [Concomitant]
     Active Substance: ENOXAPARIN SODIUM
     Indication: Product used for unknown indication
     Dosage: UNK
     Route: 065
     Dates: start: 20160825, end: 20160914
  263. ENOXAPARIN SODIUM [Concomitant]
     Active Substance: ENOXAPARIN SODIUM
     Dosage: 40 MG, QD
     Route: 065
     Dates: start: 20160723, end: 20160723
  264. ENOXAPARIN SODIUM [Concomitant]
     Active Substance: ENOXAPARIN SODIUM
     Dosage: UNK (START 25-AUG-2016)
     Dates: start: 20160914
  265. ENOXAPARIN SODIUM [Concomitant]
     Active Substance: ENOXAPARIN SODIUM
     Dosage: 110 MG, QD
     Route: 058
     Dates: start: 20160825, end: 20160914
  266. CYCLIZINE [Concomitant]
     Active Substance: CYCLIZINE
     Indication: Product used for unknown indication
     Dosage: 50 MILLIGRAM, 3/DAY
     Route: 048
     Dates: start: 20170902
  267. CYCLIZINE [Concomitant]
     Active Substance: CYCLIZINE
     Dosage: 150 MILLIGRAM, QD (START 02-SEP-2017)
     Route: 048
  268. CYCLIZINE [Concomitant]
     Active Substance: CYCLIZINE
     Dosage: 50 MILLIGRAM, TID (50 MILLIGRAM 3/DAY, START 02-SEP-2017 )
     Route: 048
  269. CYCLIZINE [Concomitant]
     Active Substance: CYCLIZINE
     Dosage: 150 MG, QD
     Route: 048
     Dates: start: 20170902
  270. CYCLIZINE [Concomitant]
     Active Substance: CYCLIZINE
     Dosage: 50 MILLIGRAM, TID (50 MILLIGRAM 3/DAY, START 02-SEP-2017)
     Route: 048
     Dates: start: 20170902
  271. CYCLIZINE [Concomitant]
     Active Substance: CYCLIZINE
     Dosage: 50 MG, TID, (3/DAY)
     Route: 048
     Dates: start: 20170902
  272. DEXAMETHASONE [Concomitant]
     Active Substance: DEXAMETHASONE
     Dosage: 2 MILLIGRAM, QD
     Route: 048
     Dates: start: 20170902, end: 20180110
  273. DEXAMETHASONE [Concomitant]
     Active Substance: DEXAMETHASONE
     Dosage: 8 MILLIGRAM
     Route: 042
     Dates: start: 20170616, end: 20170616
  274. DEXAMETHASONE [Concomitant]
     Active Substance: DEXAMETHASONE
     Dosage: 4 MILLIGRAM, QD
     Route: 048
     Dates: start: 20180110
  275. DEXAMETHASONE [Concomitant]
     Active Substance: DEXAMETHASONE
     Dosage: 2 MILLIGRAM
     Route: 048
     Dates: start: 20200111
  276. DEXAMETHASONE [Concomitant]
     Active Substance: DEXAMETHASONE
     Dosage: 4 MG, BID
     Route: 048
     Dates: start: 20170616, end: 20170902
  277. DEXAMETHASONE [Concomitant]
     Active Substance: DEXAMETHASONE
     Dosage: 8 MILLIGRAM, QD
     Route: 048
     Dates: start: 20160803, end: 20160805
  278. DEXAMETHASONE [Concomitant]
     Active Substance: DEXAMETHASONE
     Dosage: 8 MILLIGRAM
     Route: 048
     Dates: start: 20160610, end: 20160610
  279. DEXAMETHASONE [Concomitant]
     Active Substance: DEXAMETHASONE
     Dosage: 4 MILLIGRAM, BID
     Route: 048
     Dates: start: 20160722, end: 20160723
  280. DEXAMETHASONE [Concomitant]
     Active Substance: DEXAMETHASONE
     Dosage: 1 DOSAGE FORM, QD
     Route: 048
     Dates: start: 20190805, end: 201909
  281. DEXAMETHASONE [Concomitant]
     Active Substance: DEXAMETHASONE
     Dosage: 8 MILLIGRAM, QD
     Route: 042
     Dates: start: 20160803, end: 20160805
  282. DEXAMETHASONE [Concomitant]
     Active Substance: DEXAMETHASONE
     Dosage: 8 MILLIGRAM
     Route: 048
     Dates: start: 20160610, end: 20160611
  283. DEXAMETHASONE [Concomitant]
     Active Substance: DEXAMETHASONE
     Dosage: 8 MG, QD
     Route: 048
     Dates: start: 20160610, end: 20160611
  284. DEXAMETHASONE [Concomitant]
     Active Substance: DEXAMETHASONE
     Dosage: 2 MG, QD
     Route: 048
     Dates: start: 20200111
  285. DEXAMETHASONE [Concomitant]
     Active Substance: DEXAMETHASONE
     Dosage: 1 DF, QD
     Route: 048
     Dates: start: 20160805, end: 201609
  286. DEXAMETHASONE [Concomitant]
     Active Substance: DEXAMETHASONE
     Dosage: 1 DF, QD
     Route: 048
     Dates: start: 20190805, end: 201909
  287. DEXAMETHASONE [Concomitant]
     Active Substance: DEXAMETHASONE
     Dosage: 8 UNK; (DOSE FORM: 32)
     Dates: start: 20160610, end: 20160611
  288. DEXAMETHASONE [Concomitant]
     Active Substance: DEXAMETHASONE
     Dosage: 4 MG, BID (DOSE FORM: 32)
     Route: 048
     Dates: start: 20170616, end: 20170902
  289. DEXAMETHASONE [Concomitant]
     Active Substance: DEXAMETHASONE
     Dosage: 8 UNK; (DOSE FORM: 32)
     Route: 042
     Dates: start: 20170616, end: 20170616
  290. DEXAMETHASONE [Concomitant]
     Active Substance: DEXAMETHASONE
     Dosage: 2 MG, QD (DOSE FORM: 32)
     Dates: start: 20170902, end: 20180110
  291. DEXAMETHASONE [Concomitant]
     Active Substance: DEXAMETHASONE
     Dosage: 4 MG, QD (DOSE FORM: 32)
     Route: 048
     Dates: start: 20180110
  292. DEXAMETHASONE [Concomitant]
     Active Substance: DEXAMETHASONE
     Dosage: 8 MG, QD (DOSE FORM: 32)
     Dates: start: 20160803, end: 20160805
  293. DEXAMETHASONE [Concomitant]
     Active Substance: DEXAMETHASONE
     Dosage: 2 MG, QD (DOSE FORM: 32)
     Route: 048
     Dates: start: 20200111
  294. DEXAMETHASONE [Concomitant]
     Active Substance: DEXAMETHASONE
     Dosage: 40 MG, BID (DOSE FORM: 32)
     Route: 048
     Dates: start: 20160722, end: 20160723
  295. DEXAMETHASONE [Concomitant]
     Active Substance: DEXAMETHASONE
     Dosage: 1 DF (DOSE FORM: 32)
     Route: 048
     Dates: start: 20160805, end: 201609
  296. DEXAMETHASONE [Concomitant]
     Active Substance: DEXAMETHASONE
     Dosage: UNK, 1X/DAY
     Route: 048
     Dates: start: 20160805, end: 201609
  297. DEXAMETHASONE [Concomitant]
     Active Substance: DEXAMETHASONE
     Dosage: 4 MG, 2X/DAY
     Route: 042
     Dates: start: 20160722, end: 20160723
  298. DEXAMETHASONE [Concomitant]
     Active Substance: DEXAMETHASONE
     Dosage: 2 MG, 1X/DAY
     Route: 042
     Dates: start: 20180111
  299. BENZYDAMINE [Concomitant]
     Active Substance: BENZYDAMINE
     Indication: Product used for unknown indication
     Dosage: UNK, QD
     Route: 048
     Dates: start: 20160722, end: 20160723
  300. DOCUSATE [Concomitant]
     Active Substance: DOCUSATE
     Dosage: UNK
     Dates: start: 20160722, end: 20160724
  301. DOCUSATE [Concomitant]
     Active Substance: DOCUSATE
     Dosage: 20 MG, QD
     Route: 048
     Dates: start: 20160722, end: 20160724
  302. GENTAMICIN [Concomitant]
     Active Substance: GENTAMICIN
     Indication: Product used for unknown indication
     Dosage: 400 MILLIGRAM, BID
     Route: 042
     Dates: start: 20180212, end: 20180212
  303. GENTAMICIN [Concomitant]
     Active Substance: GENTAMICIN
     Dosage: 375 MILLIGRAM, QD
     Route: 042
     Dates: start: 20161009, end: 20161009
  304. GENTAMICIN [Concomitant]
     Active Substance: GENTAMICIN
     Dosage: 800 MG (400 MG, BID)
     Route: 042
     Dates: start: 20180212, end: 20180212
  305. GENTAMICIN [Concomitant]
     Active Substance: GENTAMICIN
     Dosage: 400 MILLIGRAM, BID
     Route: 042
     Dates: start: 20180212, end: 20180212
  306. GENTAMICIN [Concomitant]
     Active Substance: GENTAMICIN
     Dosage: 400 MG, BID
     Route: 042
     Dates: start: 20180212, end: 20180212
  307. LANSOPRAZOLE [Concomitant]
     Active Substance: LANSOPRAZOLE
     Indication: Product used for unknown indication
     Dosage: 30 MILLIGRAM, QD
     Route: 048
     Dates: start: 20161010
  308. LANSOPRAZOLE [Concomitant]
     Active Substance: LANSOPRAZOLE
     Dosage: 30 MG, QD
     Route: 048
     Dates: start: 20160809
  309. LANSOPRAZOLE [Concomitant]
     Active Substance: LANSOPRAZOLE
     Dosage: 30 MILLIGRAM, QD
     Route: 048
     Dates: start: 20160722, end: 20160724
  310. LEVOFLOXACIN [Concomitant]
     Active Substance: LEVOFLOXACIN
     Indication: Product used for unknown indication
     Dosage: UNKNOWN
     Route: 065
     Dates: start: 20161009, end: 20161017
  311. ONDANSETRON [Concomitant]
     Active Substance: ONDANSETRON
     Indication: Product used for unknown indication
     Dosage: 8 MG, TID, (3/D)
     Route: 048
     Dates: start: 20170902
  312. ONDANSETRON [Concomitant]
     Active Substance: ONDANSETRON
     Dosage: 8 MG, (3/D)
     Dates: start: 20170616, end: 20170626
  313. ONDANSETRON [Concomitant]
     Active Substance: ONDANSETRON
     Dosage: 24 MG, QD (8 MG, TID)
     Route: 048
     Dates: start: 20170616, end: 20170626
  314. ONDANSETRON [Concomitant]
     Active Substance: ONDANSETRON
     Dosage: 8 MG, TID
     Route: 048
     Dates: start: 20170616, end: 20170626
  315. ONDANSETRON [Concomitant]
     Active Substance: ONDANSETRON
     Dosage: 8 MG, TID
     Route: 048
     Dates: start: 20170616, end: 20170626
  316. OSELTAMIVIR [Concomitant]
     Active Substance: OSELTAMIVIR
     Indication: Product used for unknown indication
     Dosage: 15 MILLIGRAM, BID
     Route: 048
     Dates: start: 20180213, end: 20180217
  317. OSELTAMIVIR [Concomitant]
     Active Substance: OSELTAMIVIR
     Dosage: 30 MG, QD (15 MG, BID)
     Route: 065
     Dates: start: 20180213, end: 20180217
  318. OSELTAMIVIR [Concomitant]
     Active Substance: OSELTAMIVIR
     Dosage: 15 MG, BID
     Route: 065
     Dates: start: 20180213, end: 20180217
  319. ACETAMINOPHEN [Concomitant]
     Active Substance: ACETAMINOPHEN
     Indication: Product used for unknown indication
     Dosage: 1 G
     Route: 048
     Dates: start: 20170903
  320. ACETAMINOPHEN [Concomitant]
     Active Substance: ACETAMINOPHEN
     Dosage: 5 G
     Route: 048
     Dates: start: 20160803
  321. ACETAMINOPHEN [Concomitant]
     Active Substance: ACETAMINOPHEN
     Dosage: 1 G, QD
     Route: 048
     Dates: start: 20160722, end: 20160724
  322. ACETAMINOPHEN [Concomitant]
     Active Substance: ACETAMINOPHEN
     Dosage: 1 MG;
     Route: 048
     Dates: start: 20160723, end: 20160724
  323. ACETAMINOPHEN [Concomitant]
     Active Substance: ACETAMINOPHEN
     Dosage: UNK; ;
     Route: 048
     Dates: start: 20160803
  324. ACETAMINOPHEN [Concomitant]
     Active Substance: ACETAMINOPHEN
     Dosage: 1 MILLIGRAM
     Route: 048
     Dates: start: 20160723, end: 20160724
  325. RAMIPRIL [Concomitant]
     Active Substance: RAMIPRIL
     Indication: Product used for unknown indication
     Dosage: 2.3 MILLIGRAM, QD
     Route: 048
     Dates: start: 20160722
  326. RAMIPRIL [Concomitant]
     Active Substance: RAMIPRIL
     Dosage: 2.3 MG
     Route: 065
  327. SODIUM CHLORIDE [Concomitant]
     Active Substance: SODIUM CHLORIDE
     Indication: Product used for unknown indication
     Dosage: 5 ML, Q4W
     Route: 055
     Dates: start: 20170616, end: 20170623
  328. SODIUM CHLORIDE [Concomitant]
     Active Substance: SODIUM CHLORIDE
     Dosage: 58.75 ML;
     Route: 042
     Dates: start: 20180212, end: 20180214
  329. SODIUM CHLORIDE [Concomitant]
     Active Substance: SODIUM CHLORIDE
     Dosage: 5 ML, Q4W
     Route: 055
     Dates: start: 20170616, end: 20170623
  330. SODIUM CHLORIDE [Concomitant]
     Active Substance: SODIUM CHLORIDE
     Dosage: 58.75 ML;
     Route: 048
     Dates: start: 20180105, end: 20180105
  331. TRIMETHOPRIM [Concomitant]
     Active Substance: TRIMETHOPRIM
     Dosage: 2112 MG
     Route: 042
     Dates: start: 20160811, end: 20160816
  332. TRIMETHOPRIM [Concomitant]
     Active Substance: TRIMETHOPRIM
     Dosage: 50 MILLIGRAM, TID
     Route: 065
     Dates: start: 20170902
  333. TRIMETHOPRIM [Concomitant]
     Active Substance: TRIMETHOPRIM
     Dosage: 483 MG, QD (DOSE FORM:245)
     Route: 048
     Dates: start: 20180131, end: 20180131
  334. TRIMETHOPRIM [Concomitant]
     Active Substance: TRIMETHOPRIM
     Dosage: 2112 MG; (DOSE FORM: 245)
     Route: 042
     Dates: start: 20160811, end: 20160816
  335. TRIMETHOPRIM [Concomitant]
     Active Substance: TRIMETHOPRIM
     Dosage: 50 MG, TID (DOSE FORM: 245)
     Route: 065
     Dates: start: 20170902
  336. VANCOMYCIN [Concomitant]
     Active Substance: VANCOMYCIN
     Indication: Product used for unknown indication
     Dosage: UNK
     Route: 048
     Dates: start: 20181009, end: 20181009
  337. VANCOMYCIN [Concomitant]
     Active Substance: VANCOMYCIN
     Dosage: UNK MG QD;
     Route: 048
     Dates: start: 20161009, end: 20161009
  338. CASSIA SENNA FRUIT EXTRACT [Concomitant]
     Dosage: 15 MILLIGRAM, QD
     Route: 048
     Dates: start: 20160722
  339. CASSIA SENNA FRUIT EXTRACT [Concomitant]
     Dosage: 15 MILLIGRAM, QD (CUMULATIVE DOSE: 15MG)
     Route: 065
     Dates: start: 20160722
  340. SENNA LEAF [Concomitant]
     Active Substance: SENNA LEAF
     Indication: Product used for unknown indication
     Dosage: 15 MILLIGRAM, QD
     Route: 065
     Dates: start: 20160722
  341. MORPHINE SULFATE [Concomitant]
     Active Substance: MORPHINE SULFATE
     Dosage: 15 MG, EVERY 12 HOURS
     Route: 048
     Dates: start: 20180213, end: 20180217
  342. CIPROFLOXACIN HYDROCHLORIDE [Concomitant]
     Active Substance: CIPROFLOXACIN HYDROCHLORIDE
     Dosage: 15 MG, QD
     Route: 048
  343. CLARITHROMYCIN LACTOBIONATE [Concomitant]
     Active Substance: CLARITHROMYCIN LACTOBIONATE
     Dosage: 500 MG;
     Route: 048
     Dates: start: 20180214, end: 20180301
  344. BENZYDAMINE HYDROCHLORIDE [Concomitant]
     Active Substance: BENZYDAMINE HYDROCHLORIDE
     Indication: Product used for unknown indication
     Dosage: UNK, QD;
     Route: 048
     Dates: start: 20160722, end: 20160723
  345. ENOXAPARIN SODIUM [Concomitant]
     Active Substance: ENOXAPARIN SODIUM
     Dosage: UNK; ;
     Dates: start: 20160723, end: 20160723
  346. ENOXAPARIN SODIUM [Concomitant]
     Active Substance: ENOXAPARIN SODIUM
     Dosage: 40 MG, QD
     Route: 058
     Dates: start: 20160817, end: 20160914
  347. ENOXAPARIN SODIUM [Concomitant]
     Active Substance: ENOXAPARIN SODIUM
     Dosage: 1200 MG, QD
     Route: 058
     Dates: start: 20180212, end: 20180212
  348. ENOXAPARIN SODIUM [Concomitant]
     Active Substance: ENOXAPARIN SODIUM
     Dosage: 40 MG, QD
     Route: 058
     Dates: start: 20180105, end: 20180117
  349. ENOXAPARIN SODIUM [Concomitant]
     Active Substance: ENOXAPARIN SODIUM
     Dosage: 40 MG, QD
     Route: 058
     Dates: start: 20170616, end: 20170623
  350. ENOXAPARIN SODIUM [Concomitant]
     Active Substance: ENOXAPARIN SODIUM
     Dosage: UNK UNK, QD;
     Route: 058
     Dates: start: 20180214, end: 20180218
  351. ENOXAPARIN SODIUM [Concomitant]
     Active Substance: ENOXAPARIN SODIUM
     Dosage: UNK; ;
     Dates: start: 20160825, end: 20160914
  352. ENOXAPARIN SODIUM [Concomitant]
     Active Substance: ENOXAPARIN SODIUM
     Dosage: 40 MG, QD
     Route: 058
     Dates: start: 20180214, end: 20180218
  353. TAMOXIFEN [Concomitant]
     Active Substance: TAMOXIFEN
     Dosage: UNK; ;
  354. SENNA [Suspect]
     Active Substance: SENNA LEAF\SENNOSIDES\SENNOSIDES A AND B
     Dosage: 15 MG, 1X/DAY
     Route: 048
     Dates: start: 20160722, end: 20161011

REACTIONS (33)
  - Disease progression [Fatal]
  - Condition aggravated [Fatal]
  - Pain in jaw [Fatal]
  - Pain in jaw [Fatal]
  - Excessive eye blinking [Fatal]
  - Excessive eye blinking [Fatal]
  - Seizure [Fatal]
  - Hyponatraemia [Fatal]
  - Hyponatraemia [Fatal]
  - Nausea [Fatal]
  - Back pain [Fatal]
  - Nausea [Fatal]
  - Ejection fraction decreased [Fatal]
  - Dyspnoea [Fatal]
  - Nausea [Fatal]
  - Nausea [Fatal]
  - Nausea [Fatal]
  - Vomiting [Fatal]
  - Vomiting [Fatal]
  - Vomiting [Fatal]
  - Vomiting [Fatal]
  - Diarrhoea [Fatal]
  - Diarrhoea [Fatal]
  - Pneumonia [Fatal]
  - Pneumonia [Fatal]
  - Pneumonia [Fatal]
  - Lower respiratory tract infection [Fatal]
  - Lower respiratory tract infection [Fatal]
  - Lower respiratory tract infection [Fatal]
  - Chest pain [Fatal]
  - Off label use [Fatal]
  - Nausea [Recovered/Resolved]
  - Off label use [Unknown]

NARRATIVE: CASE EVENT DATE: 20160722
